FAERS Safety Report 15523234 (Version 6)
Quarter: 2018Q4

REPORT INFORMATION
  Report Type: Report from Study
  Country: None (occurrence: US)
  Receive Date: 20181018
  Receipt Date: 20181119
  Transmission Date: 20190205
  Serious: Yes (Hospitalization, Other)
  Sender: FDA-Public Use
  Company Number: US-ABBVIE-18K-163-2497137-00

PATIENT
  Age: 24 Year
  Sex: Female

DRUGS (7)
  1. RISPERDAL [Concomitant]
     Active Substance: RISPERIDONE
     Indication: PRODUCT USED FOR UNKNOWN INDICATION
  2. TYLENOL [Concomitant]
     Active Substance: ACETAMINOPHEN
     Indication: PRODUCT USED FOR UNKNOWN INDICATION
  3. MAVYRET [Suspect]
     Active Substance: GLECAPREVIR\PIBRENTASVIR
     Indication: CHRONIC HEPATITIS C
     Dosage: STRENGTH:100-40MG
     Route: 048
     Dates: start: 20180918, end: 20180921
  4. VISTARIL [Concomitant]
     Active Substance: HYDROXYZINE PAMOATE
     Indication: PRODUCT USED FOR UNKNOWN INDICATION
  5. BUSPAR [Concomitant]
     Active Substance: BUSPIRONE HYDROCHLORIDE
     Indication: PRODUCT USED FOR UNKNOWN INDICATION
  6. MAVYRET [Suspect]
     Active Substance: GLECAPREVIR\PIBRENTASVIR
     Route: 048
     Dates: start: 20180924, end: 20181009
  7. RISPERIDONE. [Concomitant]
     Active Substance: RISPERIDONE
     Indication: PRODUCT USED FOR UNKNOWN INDICATION

REACTIONS (18)
  - Pyrexia [Not Recovered/Not Resolved]
  - Pallor [Unknown]
  - Pericarditis [Recovering/Resolving]
  - Vomiting [Not Recovered/Not Resolved]
  - Dehydration [Unknown]
  - Weight decreased [Unknown]
  - Hospitalisation [Unknown]
  - Pleural effusion [Unknown]
  - Cardiomegaly [Unknown]
  - Lymphadenopathy [Unknown]
  - Complement factor C4 decreased [Unknown]
  - Double stranded DNA antibody positive [Unknown]
  - Antinuclear antibody increased [Unknown]
  - Antinuclear antibody positive [Unknown]
  - Complement factor C3 decreased [Unknown]
  - Dizziness [Unknown]
  - Systemic lupus erythematosus [Unknown]
  - Culture urine positive [Unknown]

NARRATIVE: CASE EVENT DATE: 2018
